FAERS Safety Report 9156247 (Version 1)
Quarter: 2013Q1

REPORT INFORMATION
  Report Type: Spontaneous
  Country: US (occurrence: US)
  Receive Date: 20130123
  Receipt Date: 20130123
  Transmission Date: 20140127
  Serious: No
  Sender: FDA-Public Use
  Company Number: US-BRACCO-007289

PATIENT
  Age: 69 Year
  Sex: Female

DRUGS (2)
  1. MULTIHANCE [Suspect]
     Indication: NUCLEAR MAGNETIC RESONANCE IMAGING BRAIN
     Route: 042
     Dates: start: 20111213, end: 20111213
  2. MULTIHANCE [Suspect]
     Indication: MIGRAINE
     Route: 042
     Dates: start: 20111213, end: 20111213

REACTIONS (4)
  - Ear discomfort [Recovered/Resolved]
  - Sneezing [Recovered/Resolved]
  - Paraesthesia [Recovered/Resolved]
  - Oral discomfort [Recovered/Resolved]
